FAERS Safety Report 10961226 (Version 2)
Quarter: 2015Q2

REPORT INFORMATION
  Report Type: Spontaneous
  Country: JP (occurrence: JP)
  Receive Date: 20150327
  Receipt Date: 20150410
  Transmission Date: 20150821
  Serious: Yes (Other)
  Sender: FDA-Public Use
  Company Number: JP-JNJFOC-20150316995

PATIENT
  Age: 8 Decade
  Sex: Female

DRUGS (7)
  1. CONIEL [Concomitant]
     Active Substance: BENIDIPINE HYDROCHLORIDE
     Dosage: 4 MG ONCE A DAY
     Route: 048
  2. TRAMCET [Suspect]
     Active Substance: ACETAMINOPHEN\TRAMADOL
     Indication: PAIN
     Dosage: 2 DF X 1 PER 1 DAY
     Route: 048
  3. ECARD (CANDESARTAN CILEXETIL/HYDROCHLOROTHIAZIDE) [Concomitant]
     Active Substance: CANDESARTAN CILEXETIL\HYDROCHLOROTHIAZIDE
     Dosage: 1 DOSE ONCE A DAY
     Route: 048
  4. ZOLPIDEM TARTRATE. [Concomitant]
     Active Substance: ZOLPIDEM TARTRATE
     Dosage: 10 MG ONCE A DAY
     Route: 048
  5. OMEPRAZOLE. [Concomitant]
     Active Substance: OMEPRAZOLE
     Dosage: 1 DOSE ONCE A DAY
     Route: 048
  6. CLINORIL [Concomitant]
     Active Substance: SULINDAC
     Dosage: 300 MG ONCE A DAY
     Route: 048
  7. DEPAS [Concomitant]
     Active Substance: ETIZOLAM
     Dosage: 1 MG ONCE A DAY
     Route: 048

REACTIONS (2)
  - Respiratory depression [Unknown]
  - Altered state of consciousness [Unknown]
